FAERS Safety Report 7161269-6 (Version None)
Quarter: 2010Q4

REPORT INFORMATION
  Report Type: 
  Country: None (occurrence: None)
  Receive Date: 20101210
  Receipt Date: 20101210
  Transmission Date: 20110411
  Serious: Yes (Death)
  Sender: FDA-Public Use
  Company Number: None

PATIENT
  Age: 63 Year
  Sex: Female

DRUGS (2)
  1. LOVENOX [Suspect]
     Indication: DEEP VEIN THROMBOSIS
     Dosage: 150MG BID SQ
     Route: 058
     Dates: start: 20100509, end: 20101101
  2. LOVENOX [Suspect]
     Indication: LUNG NEOPLASM MALIGNANT
     Dosage: 150MG BID SQ
     Route: 058
     Dates: start: 20100509, end: 20101101

REACTIONS (1)
  - DEATH [None]
